FAERS Safety Report 11456444 (Version 1)
Quarter: 2015Q3

REPORT INFORMATION
  Report Type: Spontaneous
  Country: US (occurrence: US)
  Receive Date: 20150903
  Receipt Date: 20150903
  Transmission Date: 20151125
  Serious: Yes (Other)
  Sender: FDA-Public Use
  Company Number: US-TAKEDA-2014TUS002046

PATIENT

DRUGS (6)
  1. AMARYL [Concomitant]
     Active Substance: GLIMEPIRIDE
     Dosage: 8 MG, UNK
     Dates: start: 201103
  2. JANUVIA [Concomitant]
     Active Substance: SITAGLIPTIN PHOSPHATE
     Dosage: 100 MG, UNK
     Dates: start: 201010, end: 201310
  3. ACTOS [Suspect]
     Active Substance: PIOGLITAZONE HYDROCHLORIDE
     Indication: TYPE 2 DIABETES MELLITUS
     Dosage: 30MG, 90MG UNK
     Route: 048
     Dates: start: 2000, end: 201212
  4. DIABETA                            /00145301/ [Concomitant]
     Dosage: 15 MG, UNK
     Dates: start: 1987, end: 201102
  5. LANTUS [Concomitant]
     Active Substance: INSULIN GLARGINE
     Indication: DIABETES MELLITUS
     Dosage: 24 IU, UNK
     Dates: start: 201206
  6. METFORMIN [Concomitant]
     Active Substance: METFORMIN HYDROCHLORIDE
     Dosage: 2000 MG, UNK
     Dates: start: 200901

REACTIONS (1)
  - Bladder cancer [Unknown]

NARRATIVE: CASE EVENT DATE: 20130719
